FAERS Safety Report 5599764-3 (Version None)
Quarter: 2008Q1

REPORT INFORMATION
  Report Type: 
  Country: None (occurrence: None)
  Receive Date: 20080123
  Receipt Date: 20080116
  Transmission Date: 20080703
  Serious: Yes (Hospitalization)
  Sender: FDA-Public Use
  Company Number: FR-BRISTOL-MYERS SQUIBB COMPANY-14044358

PATIENT
  Age: 3 Month
  Sex: Female

DRUGS (5)
  1. AMIKLIN [Suspect]
     Indication: PYELONEPHRITIS ACUTE
     Dosage: 1 INJECTION DAILY.
     Route: 030
     Dates: start: 20070803, end: 20070805
  2. ROCEPHIN [Suspect]
     Dosage: IV INJECTION DAILY FOR 4 DAYS
     Route: 042
     Dates: start: 20070803, end: 20070808
  3. MOTILIUM [Concomitant]
     Indication: GASTROOESOPHAGEAL REFLUX DISEASE
     Route: 048
  4. GAVISCON [Concomitant]
     Indication: GASTROOESOPHAGEAL REFLUX DISEASE
     Route: 048
  5. RANITIDINE HCL [Concomitant]
     Route: 048

REACTIONS (1)
  - PANCYTOPENIA [None]
